FAERS Safety Report 5672977-8 (Version None)
Quarter: 2008Q1

REPORT INFORMATION
  Report Type: 
  Country: None (occurrence: None)
  Receive Date: 20080319
  Receipt Date: 20080314
  Transmission Date: 20080703
  Serious: Yes (Hospitalization)
  Sender: FDA-Public Use
  Company Number: B0510274A

PATIENT
  Age: 21 Year
  Sex: Female

DRUGS (20)
  1. FLOLAN [Suspect]
     Indication: PULMONARY HYPERTENSION
     Route: 042
     Dates: start: 20020601
  2. VIAGRA [Suspect]
     Indication: PULMONARY HYPERTENSION
     Dosage: 20MG TWICE PER DAY
     Route: 048
     Dates: start: 20080212, end: 20080216
  3. VIAGRA [Suspect]
     Dosage: 10MG TWICE PER DAY
     Route: 048
     Dates: start: 20080304
  4. WARFARIN SODIUM [Concomitant]
     Dosage: 3.75MG PER DAY
     Route: 048
     Dates: start: 19930201
  5. NU-LOTAN [Concomitant]
     Route: 048
  6. ZITHROMAX [Concomitant]
     Route: 048
  7. COLDRIN [Concomitant]
     Indication: COUGH
     Dosage: 75MG PER DAY
     Route: 048
     Dates: start: 20080214
  8. MUCOSOLVAN [Concomitant]
     Route: 048
  9. VENETLIN [Concomitant]
     Route: 065
  10. TRACLEER [Concomitant]
     Route: 048
  11. TRACLEER [Concomitant]
     Indication: PULMONARY HYPERTENSION
     Dosage: 250MG PER DAY
     Route: 048
     Dates: start: 20070323
  12. FUROSEMIDE [Concomitant]
     Indication: CARDIAC FAILURE
     Dosage: 40MG PER DAY
     Route: 048
     Dates: start: 20080207
  13. ALDACTONE [Concomitant]
     Indication: CARDIAC FAILURE
     Dosage: 50MG PER DAY
     Route: 048
     Dates: start: 20080207
  14. FLUITRAN [Concomitant]
     Indication: CARDIAC FAILURE
     Dosage: 2MG PER DAY
     Route: 048
     Dates: start: 20070717
  15. SLOW-K [Concomitant]
     Dosage: 1200MG PER DAY
     Route: 048
     Dates: start: 20070905
  16. GASTER D [Concomitant]
     Indication: GASTRITIS
     Dosage: 20MG PER DAY
     Route: 048
     Dates: start: 20070606
  17. IPD [Concomitant]
     Dosage: 200MG PER DAY
     Route: 048
     Dates: start: 20070413
  18. ALLELOCK [Concomitant]
     Dosage: 10MG PER DAY
     Route: 048
     Dates: start: 20071219
  19. HANP [Concomitant]
     Indication: CARDIAC FAILURE
     Route: 042
     Dates: start: 20080110, end: 20080204
  20. UNKNOWN DRUG [Concomitant]
     Indication: CARDIAC FAILURE
     Route: 042
     Dates: start: 20080110

REACTIONS (12)
  - EOSINOPHIL COUNT INCREASED [None]
  - EOSINOPHILIC PNEUMONIA [None]
  - EYE SWELLING [None]
  - HAEMOPTYSIS [None]
  - INTERSTITIAL LUNG DISEASE [None]
  - NASAL CONGESTION [None]
  - PLEURAL EFFUSION [None]
  - PRODUCTIVE COUGH [None]
  - PULMONARY HAEMORRHAGE [None]
  - RHINORRHOEA [None]
  - RIGHT VENTRICULAR FAILURE [None]
  - SWELLING FACE [None]
